FAERS Safety Report 5128545-X (Version None)
Quarter: 2006Q4

REPORT INFORMATION
  Report Type: 
  Country: None (occurrence: None)
  Receive Date: 20061011
  Receipt Date: 20060925
  Transmission Date: 20070319
  Serious: Yes (Hospitalization, Other)
  Sender: FDA-Public Use
  Company Number: CHPA2006US09211

PATIENT
  Sex: Female

DRUGS (1)
  1. EXCEDRIN (MIGRAINE) [Suspect]
     Indication: DYSMENORRHOEA
     Dosage: UP TO 8 TABLETS DAILY

REACTIONS (2)
  - DRUG DEPENDENCE [None]
  - DRUG TOXICITY [None]
